FAERS Safety Report 23194120 (Version 1)
Quarter: 2023Q4

REPORT INFORMATION
  Report Type: Spontaneous
  Country: US (occurrence: US)
  Receive Date: 20231117
  Receipt Date: 20231117
  Transmission Date: 20240110
  Serious: Yes (Hospitalization, Other)
  Sender: FDA-Public Use
  Company Number: US-ALEMBIC PHARMACUETICALS LIMITED-2023SCAL001081

PATIENT

DRUGS (5)
  1. LINEZOLID [Suspect]
     Active Substance: LINEZOLID
     Indication: Tuberculosis
     Dosage: 600 MILLIGRAM, QD
     Route: 065
  2. LINEZOLID [Suspect]
     Active Substance: LINEZOLID
     Dosage: 600 MILLIGRAM, TIW
     Route: 065
  3. BEDAQUILINE [Suspect]
     Active Substance: BEDAQUILINE
     Indication: Tuberculosis
     Dosage: 400 MILLIGRAM, QD
     Route: 065
  4. BEDAQUILINE [Suspect]
     Active Substance: BEDAQUILINE
     Dosage: 200 MILLIGRAM, TIW
     Route: 065
  5. PRETOMANID [Suspect]
     Active Substance: PRETOMANID
     Indication: Tuberculosis
     Dosage: 200 MILLIGRAM, QD
     Route: 065

REACTIONS (4)
  - Pancreatitis [Unknown]
  - Hypertransaminasaemia [Unknown]
  - Anaemia [Unknown]
  - Drug level increased [Unknown]
